FAERS Safety Report 14342509 (Version 2)
Quarter: 2018Q1

REPORT INFORMATION
  Report Type: Other
  Country: GB (occurrence: GB)
  Receive Date: 20180102
  Receipt Date: 20180228
  Transmission Date: 20180509
  Serious: Yes (Other)
  Sender: FDA-Public Use
  Company Number: GB-ASPEN-GLO2017GB008864

PATIENT
  Age: 11 Year
  Sex: Female

DRUGS (1)
  1. DEXAMETHASONE. [Suspect]
     Active Substance: DEXAMETHASONE
     Indication: NON-HODGKIN^S LYMPHOMA
     Dosage: 9 MG, QD
     Route: 048

REACTIONS (5)
  - Headache [Unknown]
  - Glaucoma [Recovering/Resolving]
  - Photophobia [Unknown]
  - Intraocular pressure increased [Recovered/Resolved]
  - Vision blurred [Unknown]
